FAERS Safety Report 13400990 (Version 1)
Quarter: 2017Q2

REPORT INFORMATION
  Report Type: Spontaneous
  Country: US (occurrence: US)
  Receive Date: 20170404
  Receipt Date: 20170404
  Transmission Date: 20170830
  Serious: Yes (Other)
  Sender: FDA-Public Use
  Company Number: US-PFIZER INC-2017120430

PATIENT
  Age: 45 Year
  Sex: Male

DRUGS (4)
  1. BICARBONATE [Concomitant]
     Active Substance: BICARBONATE ION
  2. ATROPINE. [Concomitant]
     Active Substance: ATROPINE
  3. LIDOCAINE. [Concomitant]
     Active Substance: LIDOCAINE
  4. EPINEPHRINE. [Suspect]
     Active Substance: EPINEPHRINE
     Indication: RESUSCITATION
     Dosage: UNK, SINGLE
     Route: 013

REACTIONS (3)
  - Incorrect route of drug administration [Recovered/Resolved]
  - Arterial spasm [Recovered/Resolved]
  - General physical health deterioration [Recovered/Resolved]
